FAERS Safety Report 22393920 (Version 2)
Quarter: 2023Q2

REPORT INFORMATION
  Report Type: Report from Study
  Country: FR (occurrence: FR)
  Receive Date: 20230601
  Receipt Date: 20230618
  Transmission Date: 20230722
  Serious: Yes (Hospitalization)
  Sender: FDA-Public Use
  Company Number: FR-AMGEN-FRACT2023091689

PATIENT
  Age: 66 Year
  Sex: Male
  Weight: 60 kg

DRUGS (5)
  1. PANITUMUMAB [Suspect]
     Active Substance: PANITUMUMAB
     Indication: Colorectal cancer
     Dosage: 372 MILLIGRAM, CUMULATIVE DOSE SINCE THE FIRST ADMINISTRATION: 1488 MG (CYCLE 4)
     Route: 042
     Dates: start: 20190906
  2. OXALIPLATIN [Suspect]
     Active Substance: OXALIPLATIN
     Indication: Colorectal cancer
     Dosage: 149 MILLIGRAM, CUMULATIVE DOSE SINCE THE FIRST ADMINISTRATION: 596 MG (CYCLE 4)
     Route: 042
     Dates: start: 20190906
  3. LEUCOVORIN [Suspect]
     Active Substance: LEUCOVORIN
     Indication: Colorectal cancer
     Dosage: 704 MILLIGRAM, CUMULATIVE DOSE SINCE THE FIRST ADMINISTRATION: 2816 MG (CYCLE 4)
     Route: 042
     Dates: start: 20190906
  4. FLUOROURACIL [Suspect]
     Active Substance: FLUOROURACIL
     Indication: Colorectal cancer
     Dosage: 704 MILLIGRAM, CUMULATIVE DOSE SINCE THE FIRST ADMINISTRATION: 2816 MG (CYCLE 4) (IV BOLUS)
     Route: 042
     Dates: start: 20190906
  5. FLUOROURACIL [Suspect]
     Active Substance: FLUOROURACIL
     Dosage: 4224 MILLIGRAM, CUMULATIVE DOSE SINCE THE FIRST ADMINISTRATION: 16896 MG (CYCLE 4) (IV CONTINUOUS)
     Route: 042
     Dates: start: 20190906

REACTIONS (1)
  - Subileus [Recovered/Resolved]

NARRATIVE: CASE EVENT DATE: 20191018
